FAERS Safety Report 6718920-1 (Version None)
Quarter: 2010Q2

REPORT INFORMATION
  Report Type: 
  Country: None (occurrence: None)
  Receive Date: 20100511
  Receipt Date: 20100430
  Transmission Date: 20101027
  Serious: No
  Sender: FDA-Public Use
  Company Number: 2010BI003650

PATIENT
  Age: 49 Year
  Sex: Female

DRUGS (2)
  1. TYSABRI [Suspect]
     Indication: MULTIPLE SCLEROSIS
     Route: 042
     Dates: start: 20091215, end: 20100201
  2. AVONEX [Concomitant]
     Indication: MULTIPLE SCLEROSIS

REACTIONS (16)
  - CONCUSSION [None]
  - CONSTIPATION [None]
  - GLUCOSE URINE PRESENT [None]
  - HEAD INJURY [None]
  - HEADACHE [None]
  - HYPOAESTHESIA [None]
  - HYPOGLYCAEMIA [None]
  - INCONTINENCE [None]
  - INFECTIVE MYOSITIS [None]
  - MENOPAUSE [None]
  - MENSTRUATION IRREGULAR [None]
  - MULTIPLE SCLEROSIS RELAPSE [None]
  - NAUSEA [None]
  - OSTEOPOROSIS [None]
  - POOR VENOUS ACCESS [None]
  - SPORTS INJURY [None]
